FAERS Safety Report 23521540 (Version 1)
Quarter: 2024Q1

REPORT INFORMATION
  Report Type: 
  Country: None (occurrence: None)
  Receive Date: 20240214
  Receipt Date: 20240214
  Transmission Date: 20240410
  Serious: No
  Sender: FDA-Public Use
  Company Number: US-ROCHE-3462744

PATIENT
  Age: 90 Year

DRUGS (1)
  1. ATEZOLIZUMAB [Suspect]
     Active Substance: ATEZOLIZUMAB
     Dosage: THIRD CYCLE OF ATEZOLIZUMAB COMPLETED 28/SEP/2023

REACTIONS (6)
  - Anaemia [None]
  - Diarrhoea [None]
  - Hyponatraemia [None]
  - Cough [None]
  - Dyspnoea [None]
  - Hypotension [None]

NARRATIVE: CASE EVENT DATE: 20231018
